FAERS Safety Report 5427415-7 (Version None)
Quarter: 2007Q3

REPORT INFORMATION
  Report Type: 
  Country: None (occurrence: None)
  Receive Date: 20070828
  Receipt Date: 20070822
  Transmission Date: 20080115
  Serious: Yes (Death, Other)
  Sender: FDA-Public Use
  Company Number: US-PURDUE-USA_2007_0027625

PATIENT
  Sex: Female

DRUGS (2)
  1. OXYCONTIN [Suspect]
     Indication: DRUG USE FOR UNKNOWN INDICATION
     Dosage: 160 MG, DAILY
     Dates: start: 19990303, end: 20000308
  2. OXYCONTIN [Suspect]
     Dosage: 120 MG, DAILY

REACTIONS (9)
  - ABASIA [None]
  - AMNESIA [None]
  - DRUG DEPENDENCE [None]
  - FALL [None]
  - INCOHERENT [None]
  - MULTI-ORGAN FAILURE [None]
  - PERSONALITY CHANGE [None]
  - SWELLING [None]
  - UROSEPSIS [None]
